FAERS Safety Report 5394304-6 (Version None)
Quarter: 2007Q3

REPORT INFORMATION
  Report Type: 
  Country: None (occurrence: None)
  Receive Date: 20070723
  Receipt Date: 20070523
  Transmission Date: 20080115
  Serious: No
  Sender: FDA-Public Use
  Company Number: A0652636A

PATIENT
  Age: 74 Year
  Sex: Female

DRUGS (13)
  1. AVANDIA [Suspect]
     Dosage: 2MG PER DAY
     Route: 048
     Dates: start: 20040101, end: 20070101
  2. FUROSEMIDE [Concomitant]
  3. ALTACE [Concomitant]
  4. METFORMIN HCL [Concomitant]
  5. ALLOPURINOL [Concomitant]
  6. KLOR-CON [Concomitant]
  7. FEXOFENADINE [Concomitant]
  8. GABAPENTIN [Concomitant]
  9. ASPIRIN [Concomitant]
  10. MULTI-VITAMIN [Concomitant]
  11. CRANBERRY [Concomitant]
  12. SUPPLEMENT [Concomitant]
  13. CELEBREX [Concomitant]

REACTIONS (4)
  - ADVERSE EVENT [None]
  - FATIGUE [None]
  - SWELLING [None]
  - WEIGHT INCREASED [None]
